FAERS Safety Report 8506367 (Version 9)
Quarter: 2013Q2

REPORT INFORMATION
  Report Type: Spontaneous
  Country: US (occurrence: US)
  Receive Date: 20120412
  Receipt Date: 20130410
  Transmission Date: 20140414
  Serious: Yes (Hospitalization, Other)
  Sender: FDA-Public Use
  Company Number: US-009507513-1204USA01363

PATIENT
  Sex: Female
  Weight: 61.22 kg

DRUGS (6)
  1. FOSAMAX [Suspect]
     Indication: OSTEOPOROSIS
     Dosage: 70 MG, UNK
     Route: 048
     Dates: start: 1995, end: 2010
  2. FOSAMAX [Suspect]
     Indication: OSTEOPENIA
     Dosage: 70 MG, UNK
     Route: 048
     Dates: start: 2004, end: 2006
  3. FOSAMAX PLUS D [Suspect]
     Indication: OSTEOPOROSIS
     Dosage: 70 MG, UNK
     Route: 048
     Dates: start: 2007, end: 2009
  4. VITAMINS (UNSPECIFIED) [Concomitant]
     Route: 048
  5. CALCIUM (UNSPECIFIED) [Concomitant]
     Route: 048
  6. RECLAST [Suspect]
     Indication: OSTEOPOROSIS
     Dosage: UNK
     Dates: start: 2010

REACTIONS (42)
  - Open reduction of fracture [Unknown]
  - Femur fracture [Unknown]
  - Open reduction of fracture [Unknown]
  - B-cell lymphoma [Unknown]
  - Hip fracture [Unknown]
  - Fall [Unknown]
  - Fracture nonunion [Recovered/Resolved]
  - Muscular weakness [Unknown]
  - Device failure [Unknown]
  - Peroneal nerve palsy [Unknown]
  - Chronic lymphocytic leukaemia [Unknown]
  - Haemoglobin decreased [Unknown]
  - Haematocrit decreased [Unknown]
  - Femur fracture [Unknown]
  - Vomiting [Unknown]
  - Impaired healing [Unknown]
  - Osteoarthritis [Unknown]
  - Device failure [Unknown]
  - Low turnover osteopathy [Unknown]
  - Osteoarthritis [Unknown]
  - Peripheral vascular disorder [Not Recovered/Not Resolved]
  - Hypercholesterolaemia [Unknown]
  - Femur fracture [Unknown]
  - Bursitis [Unknown]
  - Spinal osteoarthritis [Unknown]
  - Aortic calcification [Unknown]
  - Hypertension [Unknown]
  - Diabetes mellitus inadequate control [Unknown]
  - Amnesia [Unknown]
  - Urinary tract infection [Unknown]
  - Insomnia [Unknown]
  - Surgery [Unknown]
  - Neck plastic surgery [Unknown]
  - Drug intolerance [Unknown]
  - Atelectasis [Unknown]
  - Osteoarthritis [Unknown]
  - Fall [Unknown]
  - Spinal compression fracture [Unknown]
  - Arthralgia [Unknown]
  - Arthralgia [Unknown]
  - Pain in extremity [Unknown]
  - Nausea [Unknown]
